FAERS Safety Report 21802694 (Version 1)
Quarter: 2022Q4

REPORT INFORMATION
  Report Type: Report from Study
  Country: BR (occurrence: BR)
  Receive Date: 20221231
  Receipt Date: 20221231
  Transmission Date: 20230113
  Serious: Yes (Other)
  Sender: FDA-Public Use
  Company Number: BR-002147023-NVSC2022BR300235

PATIENT
  Age: 36 Year
  Sex: Female

DRUGS (1)
  1. COSENTYX [Suspect]
     Active Substance: SECUKINUMAB
     Indication: Product used for unknown indication
     Dosage: UNK (LAST APPLICATION WAS ABOUT 2 OR 3 YEARS AGO)
     Route: 065

REACTIONS (1)
  - Neoplasm of appendix [Recovered/Resolved]

NARRATIVE: CASE EVENT DATE: 20221001
